FAERS Safety Report 4684703-X (Version None)
Quarter: 2005Q2

REPORT INFORMATION
  Report Type: 
  Country: None (occurrence: None)
  Receive Date: 20050531
  Receipt Date: 20050209
  Transmission Date: 20051028
  Serious: Yes (Hospitalization)
  Sender: FDA-Public Use
  Company Number: USA050289857

PATIENT
  Age: 47 Year
  Sex: Male
  Weight: 93 kg

DRUGS (2)
  1. ZYPREXA [Suspect]
     Indication: SCHIZOPHRENIA, PARANOID TYPE
     Dosage: 40 MG IN THE EVENING
     Dates: start: 19980101, end: 20050120
  2. PROZAC [Suspect]
     Indication: DEPRESSION
     Dosage: 60 MG/1 DAY
     Dates: start: 20030101, end: 20050120

REACTIONS (5)
  - DEPRESSION [None]
  - DIABETES MELLITUS [None]
  - HYPOAESTHESIA [None]
  - NAIL DISORDER [None]
  - PRESCRIBED OVERDOSE [None]
